FAERS Safety Report 10007446 (Version 1)
Quarter: 2014Q1

REPORT INFORMATION
  Report Type: Spontaneous
  Country: GB (occurrence: None)
  Receive Date: 20140311
  Receipt Date: 20140311
  Transmission Date: 20141002
  Serious: Yes (Life-Threatening)
  Sender: FDA-Public Use
  Company Number: CL-555-2014

PATIENT
  Age: 72 Year
  Sex: Male
  Weight: 128 kg

DRUGS (2)
  1. METRONIDAZOLE [Suspect]
     Route: 042
     Dates: start: 20140205
  2. ONDANSETRON [Suspect]
     Route: 042
     Dates: start: 20140205

REACTIONS (1)
  - Anaphylactic shock [None]
